FAERS Safety Report 7509014-6 (Version None)
Quarter: 2011Q2

REPORT INFORMATION
  Report Type: 
  Country: None (occurrence: None)
  Receive Date: 20110519
  Receipt Date: 20110504
  Transmission Date: 20111010
  Serious: Yes (Hospitalization)
  Sender: FDA-Public Use
  Company Number: DSA_45358_2011

PATIENT
  Age: 77 Year
  Sex: Female

DRUGS (7)
  1. APIXABAN [Suspect]
     Indication: THROMBOSIS PROPHYLAXIS
     Dosage: (10 MG QD ORAL)
     Route: 048
     Dates: start: 20110116
  2. APIXABAN [Suspect]
     Indication: THROMBOSIS PROPHYLAXIS
     Dosage: (10 MG QD ORAL)
     Route: 048
     Dates: start: 20101220, end: 20110114
  3. APIXABAN [Suspect]
     Indication: THROMBOSIS PROPHYLAXIS
     Dosage: (10 MG QD ORAL)
     Route: 048
     Dates: start: 20091102, end: 20101211
  4. ENALAPRIL MALEATE [Suspect]
     Indication: PRODUCT USED FOR UNKNOWN INDICATION
     Dosage: (DF ORAL)
     Route: 048
     Dates: start: 20100203, end: 20110114
  5. WARFARIN SODIUM [Suspect]
     Indication: THROMBOSIS PROPHYLAXIS
     Dosage: (24 MG 1X/WEEK ORAL)
     Route: 048
     Dates: start: 20091102, end: 20101211
  6. WARFARIN SODIUM [Suspect]
     Indication: THROMBOSIS PROPHYLAXIS
     Dosage: (24 MG 1X/WEEK ORAL)
     Route: 048
     Dates: start: 20101220, end: 20110114
  7. WARFARIN SODIUM [Suspect]
     Indication: THROMBOSIS PROPHYLAXIS
     Dosage: (24 MG 1X/WEEK ORAL)
     Route: 048
     Dates: start: 20110116

REACTIONS (8)
  - RENAL COLIC [None]
  - HYPERKALAEMIA [None]
  - MICROCYTIC ANAEMIA [None]
  - CONDITION AGGRAVATED [None]
  - CALCULUS URINARY [None]
  - DIVERTICULITIS [None]
  - RENAL FAILURE [None]
  - ESCHERICHIA TEST POSITIVE [None]
